FAERS Safety Report 6841075-X (Version None)
Quarter: 2010Q3

REPORT INFORMATION
  Report Type: 
  Country: None (occurrence: None)
  Receive Date: 20100714
  Receipt Date: 20070625
  Transmission Date: 20110219
  Serious: No
  Sender: FDA-Public Use
  Company Number: US-PFIZER INC-2007052341

PATIENT
  Sex: Female
  Weight: 77.3 kg

DRUGS (4)
  1. CHANTIX [Suspect]
     Indication: SMOKING CESSATION THERAPY
     Dates: start: 20070619
  2. XANAX [Concomitant]
  3. VIVELLE-DOT [Concomitant]
  4. PROGESTERONE [Concomitant]

REACTIONS (3)
  - ANXIETY [None]
  - CONSTIPATION [None]
  - NERVOUSNESS [None]
